FAERS Safety Report 8512904-9 (Version None)
Quarter: 2012Q3

REPORT INFORMATION
  Report Type: 
  Country: None (occurrence: None)
  Receive Date: 20120716
  Receipt Date: 20120703
  Transmission Date: 20120928
  Serious: Yes (Death, Hospitalization)
  Sender: FDA-Public Use
  Company Number: JP-CELGENEUS-087-CCAZA-12070304

PATIENT
  Sex: Male
  Weight: 53 kg

DRUGS (16)
  1. AZACITIDINE [Suspect]
     Dosage: 300 MILLIGRAM
     Route: 048
     Dates: start: 20120529, end: 20120501
  2. SENNOSIDE A+B [Concomitant]
     Indication: CONSTIPATION
     Dosage: 24 MILLIGRAM
     Route: 048
     Dates: start: 20120221
  3. SODIUM PICOSULFATE HYDRATE [Concomitant]
     Indication: CONSTIPATION
     Route: 048
     Dates: start: 20120220
  4. BROTIZOLAM [Concomitant]
     Indication: INSOMNIA
     Dosage: .25 MILLIGRAM
     Route: 048
     Dates: start: 20120524
  5. AMLODIPINE BESYLATE [Concomitant]
     Indication: HYPERTENSION
     Dosage: 2.5 MILLIGRAM
     Route: 048
     Dates: start: 20091001
  6. AZACITIDINE [Suspect]
     Dosage: 200 MILLIGRAM
     Route: 048
     Dates: start: 20120525, end: 20120501
  7. ASPIRIN [Concomitant]
     Indication: ACUTE CORONARY SYNDROME
     Dosage: 100 MILLIGRAM
     Route: 048
     Dates: start: 20120619
  8. CLOPIDOGREL BISULFATE [Concomitant]
     Indication: ACUTE CORONARY SYNDROME
     Dosage: 75 MILLIGRAM
     Route: 048
     Dates: start: 20120619
  9. PRAVASTATIN SODIUM [Concomitant]
     Indication: PROPHYLAXIS
     Dosage: 10 MILLIGRAM
     Route: 048
     Dates: start: 20120619
  10. ESTAZOLAM [Concomitant]
     Indication: INSOMNIA
     Dosage: 3 MILLIGRAM
     Route: 048
     Dates: start: 20120604
  11. LORATADINE [Concomitant]
     Indication: PRURITUS
     Dosage: 10 MILLIGRAM
     Route: 048
  12. HYDROXYZINE PAMOATE [Concomitant]
     Indication: PRURITUS
     Dosage: 25 MILLIGRAM
     Route: 048
  13. LANSOPRAZOLE [Concomitant]
     Indication: GASTRITIS PROPHYLAXIS
     Dosage: 15 MILLIGRAM
     Route: 048
     Dates: start: 20120619
  14. CARVEDILOL [Concomitant]
     Indication: ACUTE CORONARY SYNDROME
     Dosage: 5 MILLIGRAM
     Route: 048
     Dates: start: 20120619
  15. POTASSIUM CITRATE W/SODIUM CITRATE [Concomitant]
     Indication: HYPERURICAEMIA
     Dosage: 9 MILLIGRAM
     Route: 048
     Dates: start: 20120625
  16. ISOSORBIDE DINITRATE [Concomitant]
     Indication: ACUTE CORONARY SYNDROME
     Dosage: 1
     Route: 061
     Dates: start: 20120619

REACTIONS (1)
  - PNEUMONIA [None]
